FAERS Safety Report 19644890 (Version 1)
Quarter: 2021Q3

REPORT INFORMATION
  Report Type: Report from Study
  Country: DE (occurrence: DE)
  Receive Date: 20210802
  Receipt Date: 20210802
  Transmission Date: 20211014
  Serious: Yes (Hospitalization, Other)
  Sender: FDA-Public Use
  Company Number: DE-AUROBINDO-AUR-APL-2021-032307

PATIENT
  Age: 65 Year
  Sex: Male

DRUGS (1)
  1. AMLODIPINE [Suspect]
     Active Substance: AMLODIPINE BESYLATE
     Indication: PRODUCT USED FOR UNKNOWN INDICATION
     Dosage: UNK
     Route: 065

REACTIONS (10)
  - Atrial fibrillation [Unknown]
  - Overdose [Unknown]
  - Confusional state [Unknown]
  - Somnolence [Unknown]
  - Anterograde amnesia [Unknown]
  - Hypovolaemic shock [Unknown]
  - Medication error [Unknown]
  - Thrombosis [Unknown]
  - Toxicity to various agents [Unknown]
  - Embolic stroke [Unknown]
